FAERS Safety Report 21515796 (Version 2)
Quarter: 2022Q4

REPORT INFORMATION
  Report Type: Spontaneous
  Country: KR (occurrence: KR)
  Receive Date: 20221027
  Receipt Date: 20221109
  Transmission Date: 20230112
  Serious: Yes (Life-Threatening)
  Sender: FDA-Public Use
  Company Number: KR-Merck Healthcare KGaA-9359520

PATIENT
  Age: 57 Year
  Sex: Male

DRUGS (3)
  1. CETUXIMAB [Suspect]
     Active Substance: CETUXIMAB
     Indication: Colon cancer metastatic
     Dosage: UNK, UNKNOWN
     Route: 042
  2. HYDROCORTISONE [Concomitant]
     Active Substance: HYDROCORTISONE
     Indication: Premedication
     Dosage: 100 MG, UNKNOWN
     Route: 042
  3. CHLORPHENIRAMINE [Concomitant]
     Active Substance: CHLORPHENIRAMINE
     Indication: Premedication
     Dosage: 4 MG, UNKNOWN
     Route: 042

REACTIONS (6)
  - Abdominal pain upper [Unknown]
  - Bowel movement irregularity [Unknown]
  - Hot flush [Unknown]
  - Loss of consciousness [Recovered/Resolved]
  - Blood pressure decreased [Recovered/Resolved]
  - Urticaria [Unknown]
